FAERS Safety Report 6057959-9 (Version None)
Quarter: 2009Q1

REPORT INFORMATION
  Report Type: 
  Country: None (occurrence: None)
  Receive Date: 20090129
  Receipt Date: 20090125
  Transmission Date: 20090719
  Serious: No
  Sender: FDA-Public Use
  Company Number: US-B.I. PHARMACEUTICALS,INC./RIDGEFIELD-2009-BP-00934BP

PATIENT
  Sex: Female

DRUGS (4)
  1. ZANTAC 150 [Suspect]
     Indication: GASTROOESOPHAGEAL REFLUX DISEASE
     Dosage: 150MG
     Route: 048
     Dates: start: 20081101
  2. HYDROCHLOROTHIAZIDE [Concomitant]
     Indication: HYPERTENSION
  3. LOVASTATIN [Concomitant]
     Indication: BLOOD CHOLESTEROL
  4. K-TAB [Concomitant]
     Indication: HYPERTENSION

REACTIONS (1)
  - PRURITUS [None]
